FAERS Safety Report 25480101 (Version 1)
Quarter: 2025Q2

REPORT INFORMATION
  Report Type: Spontaneous
  Country: US (occurrence: None)
  Receive Date: 20250625
  Receipt Date: 20250625
  Transmission Date: 20250717
  Serious: Yes (Other)
  Sender: FDA-CTU
  Company Number: None

PATIENT
  Age: 41 Year
  Sex: Female
  Weight: 112.5 kg

DRUGS (38)
  1. KESIMPTA [Suspect]
     Active Substance: OFATUMUMAB
     Indication: Multiple sclerosis
  2. METFORMIN HYDROCHLORIDE [Concomitant]
     Active Substance: METFORMIN HYDROCHLORIDE
  3. AMARYL [Concomitant]
     Active Substance: GLIMEPIRIDE
  4. LISINOPRIL [Concomitant]
     Active Substance: LISINOPRIL
  5. HYDROCHLOROTHIAZIDE [Concomitant]
     Active Substance: HYDROCHLOROTHIAZIDE
  6. Estardol Patch [Concomitant]
  7. ZOLOFT [Concomitant]
     Active Substance: SERTRALINE HYDROCHLORIDE
  8. EZETIMIBE [Concomitant]
     Active Substance: EZETIMIBE
  9. CRESTOR [Concomitant]
     Active Substance: ROSUVASTATIN CALCIUM
  10. TRICOR [Concomitant]
     Active Substance: FENOFIBRATE
  11. LEVOXYL [Concomitant]
     Active Substance: LEVOTHYROXINE SODIUM
  12. TOUJEO [Concomitant]
     Active Substance: INSULIN GLARGINE
  13. STEGLATRO [Concomitant]
     Active Substance: ERTUGLIFLOZIN PIDOLATE
  14. BUSPAR [Concomitant]
     Active Substance: BUSPIRONE HYDROCHLORIDE
  15. GABAPENTIN [Concomitant]
     Active Substance: GABAPENTIN
  16. BACLOFEN [Concomitant]
     Active Substance: BACLOFEN
  17. KESIMPTA [Concomitant]
     Active Substance: OFATUMUMAB
  18. VITAMIN E [Concomitant]
     Active Substance: .ALPHA.-TOCOPHEROL
  19. CLARITIN [Concomitant]
     Active Substance: LORATADINE
  20. Mag-Ox 400 [Concomitant]
  21. BENADRYL [Concomitant]
     Active Substance: DIPHENHYDRAMINE HYDROCHLORIDE
  22. FAMOTIDINE [Concomitant]
     Active Substance: FAMOTIDINE
  23. LACTOBACILLUS ACIDOPHILUS [Concomitant]
     Active Substance: LACTOBACILLUS ACIDOPHILUS
  24. VITAMIN B12 [Concomitant]
     Active Substance: CYANOCOBALAMIN
  25. ASPIRIN [Concomitant]
     Active Substance: ASPIRIN
  26. Tumeric curcumin [Concomitant]
  27. COENZYME Q10 [Concomitant]
     Active Substance: DIETARY SUPPLEMENT\UBIDECARENONE
  28. Evening Prim Rose Oil [Concomitant]
  29. QUERCETIN [Concomitant]
     Active Substance: QUERCETIN
  30. NAC N-Acetyl Cyusteine [Concomitant]
  31. VITAMIN A [Concomitant]
     Active Substance: VITAMIN A
  32. ZINC [Concomitant]
     Active Substance: ZINC
  33. VITAMIN C [Concomitant]
     Active Substance: ASCORBIC ACID
  34. Triple MagOx Complex [Concomitant]
  35. Colace Stool Softner [Concomitant]
  36. Ibuprofen PM [Concomitant]
  37. MELATONIN [Concomitant]
     Active Substance: MELATONIN
  38. Amberen [Concomitant]

REACTIONS (2)
  - Alopecia [None]
  - Madarosis [None]

NARRATIVE: CASE EVENT DATE: 20240928
